FAERS Safety Report 14879616 (Version 1)
Quarter: 2018Q2

REPORT INFORMATION
  Report Type: Spontaneous
  Country: US (occurrence: US)
  Receive Date: 20180425
  Receipt Date: 20180425
  Transmission Date: 20180711
  Serious: Yes (Hospitalization)
  Sender: FDA-Public Use
  Company Number: None

PATIENT
  Age: 8 Year
  Sex: Female
  Weight: 21.3 kg

DRUGS (4)
  1. CYTARABINE. [Suspect]
     Active Substance: CYTARABINE
     Dates: end: 20180306
  2. VINCRISTINE SULFATE. [Suspect]
     Active Substance: VINCRISTINE SULFATE
     Dates: end: 20180130
  3. CYCLOPHOSPHAMIDE. [Suspect]
     Active Substance: CYCLOPHOSPHAMIDE
     Dates: end: 20180227
  4. ONCASPAR [Suspect]
     Active Substance: PEGASPARGASE
     Dates: end: 20180202

REACTIONS (2)
  - Neutropenia [None]
  - Pyrexia [None]

NARRATIVE: CASE EVENT DATE: 20180306
